FAERS Safety Report 7370410-1 (Version None)
Quarter: 2011Q1

REPORT INFORMATION
  Report Type: 
  Country: None (occurrence: None)
  Receive Date: 20110323
  Receipt Date: 20110309
  Transmission Date: 20110831
  Serious: Yes (Hospitalization)
  Sender: FDA-Public Use
  Company Number: US-MYLANLABS-2011S1005244

PATIENT
  Age: 41 Year
  Sex: Male
  Weight: 141 kg

DRUGS (8)
  1. CARBAMAZEPINE [Concomitant]
     Indication: COMPLEX PARTIAL SEIZURES
     Dosage: EXTENDED-RELEASE
     Route: 065
  2. CITALOPRAM [Concomitant]
     Indication: BIPOLAR DISORDER
     Route: 065
  3. LEVETIRACETAM [Suspect]
     Indication: COMPLEX PARTIAL SEIZURES
     Dosage: TOOK 126 TABLETS OF LEVETIRACETAM 500MG (TOTAL DOSE 63G) IN 20 MIN
     Route: 065
  4. LEVETIRACETAM [Suspect]
     Dosage: GRADUALLY INCREASED UP TO 1500MG TWICE DAILY
     Route: 065
  5. LEVETIRACETAM [Suspect]
     Dosage: GRADUALLY INCREASED UP TO 1500MG TWICE DAILY
     Route: 065
  6. CLORAZEPATE DIPOTASSIUM [Concomitant]
     Indication: BIPOLAR DISORDER
     Dosage: AT NIGHT
     Route: 065
  7. LEVETIRACETAM [Suspect]
     Indication: OVERDOSE
     Dosage: TOOK 126 TABLETS OF LEVETIRACETAM 500MG (TOTAL DOSE 63G) IN 20 MIN
     Route: 065
  8. AMITRIPTYLINE [Concomitant]
     Indication: BIPOLAR DISORDER
     Route: 065

REACTIONS (5)
  - ATAXIA [None]
  - VISION BLURRED [None]
  - LEUKOPENIA [None]
  - THROMBOCYTOPENIA [None]
  - INTENTIONAL OVERDOSE [None]
